FAERS Safety Report 20313189 (Version 1)
Quarter: 2022Q1

REPORT INFORMATION
  Report Type: Spontaneous
  Country: US (occurrence: US)
  Receive Date: 20220109
  Receipt Date: 20220109
  Transmission Date: 20220423
  Serious: Yes (Disabling)
  Sender: FDA-Public Use
  Company Number: US-SA-SAC20220106000953

PATIENT
  Age: 32 Year
  Sex: Female

DRUGS (1)
  1. DUPIXENT [Suspect]
     Active Substance: DUPILUMAB
     Dosage: 300 MG, QOW
     Route: 058
     Dates: start: 20211228

REACTIONS (7)
  - Impaired driving ability [Unknown]
  - Condition aggravated [Unknown]
  - Limb discomfort [Unknown]
  - Sciatic nerve neuropathy [Unknown]
  - Nerve compression [Unknown]
  - Musculoskeletal discomfort [Unknown]
  - Inappropriate schedule of product administration [Unknown]

NARRATIVE: CASE EVENT DATE: 20220102
